FAERS Safety Report 15749619 (Version 7)
Quarter: 2019Q2

REPORT INFORMATION
  Report Type: Report from Study
  Country: US (occurrence: US)
  Receive Date: 20181221
  Receipt Date: 20190412
  Transmission Date: 20190711
  Serious: Yes (Disabling, Other)
  Sender: FDA-Public Use
  Company Number: US-BRISTOL-MYERS SQUIBB COMPANY-BMS-2018-120391

PATIENT
  Sex: Male

DRUGS (3)
  1. TYLENOL [Concomitant]
     Active Substance: ACETAMINOPHEN
     Indication: PRODUCT USED FOR UNKNOWN INDICATION
     Dosage: UNK
     Route: 065
  2. NIVOLUMAB [Suspect]
     Active Substance: NIVOLUMAB
     Indication: RENAL CELL CARCINOMA
     Dosage: UNK, Q2WK
     Route: 042
     Dates: start: 2018
  3. NIVOLUMAB [Suspect]
     Active Substance: NIVOLUMAB
     Indication: PRODUCT USED FOR UNKNOWN INDICATION
     Dosage: UNK, Q4WK
     Route: 042

REACTIONS (13)
  - Paralysis [Recovering/Resolving]
  - Fatigue [Unknown]
  - Lung disorder [Recovering/Resolving]
  - Weight increased [Unknown]
  - Meniscus injury [Recovering/Resolving]
  - Arthralgia [Recovering/Resolving]
  - Procedural pain [Recovering/Resolving]
  - Necrosis [Recovering/Resolving]
  - Nasopharyngitis [Unknown]
  - Pruritus generalised [Unknown]
  - Blood creatinine increased [Unknown]
  - Headache [Unknown]
  - Lower respiratory tract infection [Unknown]
